FAERS Safety Report 4578968-2 (Version None)
Quarter: 2005Q1

REPORT INFORMATION
  Report Type: 
  Country: None (occurrence: None)
  Receive Date: 20050211
  Receipt Date: 20030407
  Transmission Date: 20050727
  Serious: Yes (Death, Hospitalization, Other)
  Sender: FDA-Public Use
  Company Number: US-MERCK-0304USA00812

PATIENT
  Age: 80 Year
  Sex: Female
  Weight: 52 kg

DRUGS (4)
  1. VIOXX [Suspect]
     Indication: ARTHRITIS
     Route: 048
     Dates: end: 20011101
  2. PREMARIN [Concomitant]
     Indication: HORMONE REPLACEMENT THERAPY
     Route: 065
  3. SINGULAIR [Concomitant]
     Route: 065
  4. AZMACORT [Concomitant]
     Route: 055

REACTIONS (49)
  - ACUTE RESPIRATORY FAILURE [None]
  - ANOREXIA [None]
  - ATRIAL FIBRILLATION [None]
  - BLOOD ALBUMIN DECREASED [None]
  - BLOOD CHOLESTEROL INCREASED [None]
  - BRONCHIAL INFECTION [None]
  - BRONCHIECTASIS [None]
  - BRONCHITIS [None]
  - BRONCHITIS CHRONIC [None]
  - CANDIDIASIS [None]
  - CARDIAC DISORDER [None]
  - CARDIAC FAILURE CONGESTIVE [None]
  - CEREBRAL HAEMATOMA [None]
  - CEREBROVASCULAR ACCIDENT [None]
  - CHILLS [None]
  - CHRONIC OBSTRUCTIVE PULMONARY DISEASE [None]
  - CHRONIC RESPIRATORY FAILURE [None]
  - CLOSTRIDIUM COLITIS [None]
  - CONJUNCTIVITIS [None]
  - CORNEAL DISORDER [None]
  - DEATH [None]
  - DIARRHOEA [None]
  - DRUG HYPERSENSITIVITY [None]
  - DRY MOUTH [None]
  - DYSPEPSIA [None]
  - EMPHYSEMA [None]
  - FATIGUE [None]
  - HEAD DISCOMFORT [None]
  - HIATUS HERNIA [None]
  - HYPERKALAEMIA [None]
  - HYPOKALAEMIA [None]
  - HYPOXIA [None]
  - INJURY [None]
  - LOBAR PNEUMONIA [None]
  - MITRAL VALVE INCOMPETENCE [None]
  - MUSCLE SPASMS [None]
  - NAUSEA [None]
  - OEDEMA PERIPHERAL [None]
  - OXYGEN SATURATION DECREASED [None]
  - PAIN [None]
  - PALPITATIONS [None]
  - PNEUMONIA [None]
  - PNEUMONIA PNEUMOCOCCAL [None]
  - PSEUDOMONAS INFECTION [None]
  - PULMONARY HYPERTENSION [None]
  - SKIN LACERATION [None]
  - SPUTUM CULTURE POSITIVE [None]
  - TREMOR [None]
  - WEIGHT DECREASED [None]
